FAERS Safety Report 16007337 (Version 2)
Quarter: 2021Q4

REPORT INFORMATION
  Report Type: Spontaneous
  Country: US (occurrence: US)
  Receive Date: 20190226
  Receipt Date: 20211224
  Transmission Date: 20220303
  Serious: Yes (Other)
  Sender: FDA-Public Use
  Company Number: PHEH2019US008485

PATIENT
  Sex: Male

DRUGS (1)
  1. TASIGNA [Suspect]
     Active Substance: NILOTINIB
     Indication: Chronic myeloid leukaemia
     Dosage: 300 MG, BID
     Route: 048
     Dates: start: 201110, end: 20171202

REACTIONS (19)
  - Mitral valve incompetence [Unknown]
  - Erectile dysfunction [Unknown]
  - Cerebrovascular accident [Unknown]
  - Carotid artery stenosis [Unknown]
  - Transient ischaemic attack [Unknown]
  - Left ventricular hypertrophy [Unknown]
  - Bursitis [Unknown]
  - Balanoposthitis [Unknown]
  - Aphasia [Unknown]
  - Arthritis [Unknown]
  - Injury [Unknown]
  - Pyrexia [Unknown]
  - Chest pain [Unknown]
  - Fatigue [Unknown]
  - Dehydration [Unknown]
  - Arteriosclerosis [Unknown]
  - Anxiety [Unknown]
  - Emotional distress [Unknown]
  - Pain [Unknown]
